FAERS Safety Report 13964489 (Version 1)
Quarter: 2017Q3

REPORT INFORMATION
  Report Type: Spontaneous
  Country: US (occurrence: None)
  Receive Date: 20170913
  Receipt Date: 20170913
  Transmission Date: 20171128
  Serious: No
  Sender: FDA-Public Use
  Company Number: None

PATIENT
  Sex: Female
  Weight: 93.44 kg

DRUGS (2)
  1. MELOXICAM UNKNOWN GENERIC [Suspect]
     Active Substance: MELOXICAM
     Indication: PSORIATIC ARTHROPATHY
  2. COSENTYX [Concomitant]
     Active Substance: SECUKINUMAB

REACTIONS (5)
  - Rash [None]
  - Dysphagia [None]
  - Oral mucosal eruption [None]
  - Tongue eruption [None]
  - Swelling face [None]
